FAERS Safety Report 6556811-X (Version None)
Quarter: 2010Q1

REPORT INFORMATION
  Report Type: 
  Country: None (occurrence: None)
  Receive Date: 20100128
  Receipt Date: 20100119
  Transmission Date: 20100710
  Serious: Yes (Death)
  Sender: FDA-Public Use
  Company Number: PHHY2010EE04137

PATIENT

DRUGS (1)
  1. EXJADE [Suspect]

REACTIONS (1)
  - DEATH [None]
